FAERS Safety Report 5212191-3 (Version None)
Quarter: 2006Q4

REPORT INFORMATION
  Report Type: 
  Country: None (occurrence: None)
  Receive Date: 20061120
  Receipt Date: 20060630
  Transmission Date: 20070319
  Serious: Yes (Hospitalization, Disabling)
  Sender: FDA-Public Use
  Company Number: 2006-BP-06875BP (0)

PATIENT
  Age: 66 Year
  Sex: Female
  Weight: 101.8 kg

DRUGS (5)
  1. MICARDIS HCT [Suspect]
     Indication: HYPERTENSION
     Dosage: SEE TEXT, 80 MG/12.5 MG, ONCE TABLET DAILY), PO
     Route: 048
     Dates: start: 20050201, end: 20060428
  2. MICARDIS [Suspect]
     Indication: HYPERTENSION
     Dosage: 80 MG
     Dates: start: 20060428, end: 20060614
  3. PROPRANOLOL [Concomitant]
  4. RIFALACTOM [Concomitant]
  5. FIFTHROUUA [Concomitant]

REACTIONS (1)
  - BLOOD URIC ACID INCREASED [None]
